FAERS Safety Report 21330903 (Version 3)
Quarter: 2022Q4

REPORT INFORMATION
  Report Type: Spontaneous
  Country: US (occurrence: US)
  Receive Date: 20220914
  Receipt Date: 20221102
  Transmission Date: 20230113
  Serious: No
  Sender: FDA-Public Use
  Company Number: US-TEVA-2022-US-2071942

PATIENT
  Age: 83 Year

DRUGS (5)
  1. CLONAZEPAM [Suspect]
     Active Substance: CLONAZEPAM
     Indication: Balance disorder
     Dosage: .25 MILLIGRAM DAILY; STRENGTH: 0.5 MG, 2 QUARTERS OF A PILL A DAY FOR 2 WEEKS
     Route: 048
     Dates: start: 2022
  2. CLONAZEPAM [Suspect]
     Active Substance: CLONAZEPAM
     Indication: Anxiety
     Dosage: .25 MILLIGRAM DAILY; STRENGTH: 0.125 MG, DURATION 3 YEARS
     Dates: end: 2019
  3. CLONAZEPAM [Suspect]
     Active Substance: CLONAZEPAM
     Dosage: STRENGTH: 0.5 MG,1/4
     Dates: start: 20211120, end: 20211208
  4. AMLODIPINE BESYLATE [Concomitant]
     Active Substance: AMLODIPINE BESYLATE
     Indication: Product used for unknown indication
     Dosage: 5 MILLIGRAM
  5. ROSUVASTATIN [Concomitant]
     Active Substance: ROSUVASTATIN
     Indication: Product used for unknown indication
     Dosage: 5 MILLIGRAM

REACTIONS (6)
  - Withdrawal syndrome [Unknown]
  - Constipation [Unknown]
  - Depression [Unknown]
  - Fatigue [Unknown]
  - Wrong technique in product usage process [Unknown]
  - Hypersomnia [Unknown]

NARRATIVE: CASE EVENT DATE: 20210101
